FAERS Safety Report 6714900-0 (Version None)
Quarter: 2010Q2

REPORT INFORMATION
  Report Type: 
  Country: None (occurrence: None)
  Receive Date: 20100506
  Receipt Date: 20100506
  Transmission Date: 20101027
  Serious: Yes (Hospitalization)
  Sender: FDA-Public Use
  Company Number: None

PATIENT
  Age: 18 Month
  Sex: Male
  Weight: 14.5151 kg

DRUGS (2)
  1. CONCENTRATED TYLENOL INFANT DROPS [Suspect]
     Indication: PYREXIA
     Dosage: 1.6ML EVERY 4-6 HOURS  PO
     Route: 048
     Dates: start: 20100321, end: 20100330
  2. CHILDREN'S BENADRYL ALLERGY [Suspect]
     Indication: HYPERSENSITIVITY
     Dosage: 1 TEASPOON FULL EVERY 6 HOURS PO
     Route: 048
     Dates: start: 20100401, end: 20100403

REACTIONS (7)
  - BACTERIAL INFECTION [None]
  - BREATH ODOUR [None]
  - DRUG INEFFECTIVE [None]
  - HYPERPYREXIA [None]
  - HYPERSENSITIVITY [None]
  - PRODUCT QUALITY ISSUE [None]
  - VIRAL INFECTION [None]
